FAERS Safety Report 8125658-5 (Version None)
Quarter: 2012Q1

REPORT INFORMATION
  Report Type: 
  Country: None (occurrence: None)
  Receive Date: 20120206
  Receipt Date: 20120124
  Transmission Date: 20120608
  Serious: Yes (Hospitalization)
  Sender: FDA-Public Use
  Company Number: 1000027463

PATIENT
  Age: 67 Year
  Sex: Female

DRUGS (5)
  1. PHENYTOIN SODIUM [Suspect]
     Indication: EPILEPSY
     Dosage: 5 TABLETS, ORAL
     Route: 048
     Dates: end: 20120108
  2. CITALOPRAM HYDROBROMIDE [Suspect]
     Indication: DEPRESSION
     Dosage: 20 MG (20 MG, 1 IN 1 D), ORAL
     Route: 048
     Dates: start: 20100101
  3. TELMISARTAN (TELMISARTAN) (TELMISARTAN) [Concomitant]
  4. PHENYTOIN SODIUM [Suspect]
     Indication: EPILEPSY
     Dosage: 400 MG (400 MG, 1 IN 1 D), ORAL
     Route: 048
  5. OMEPRAZOLE [Suspect]
     Indication: PROPHYLAXIS AGAINST GASTROINTESTINAL ULCER
     Dosage: 20 MG (20 MG, 1 IN 1 D), ORAL
     Route: 048
     Dates: start: 20100101

REACTIONS (5)
  - VOMITING [None]
  - DIPLOPIA [None]
  - BALANCE DISORDER [None]
  - DRUG LEVEL INCREASED [None]
  - TREMOR [None]
